FAERS Safety Report 6395436-6 (Version None)
Quarter: 2009Q4

REPORT INFORMATION
  Report Type: 
  Country: None (occurrence: None)
  Receive Date: 20091009
  Receipt Date: 20091005
  Transmission Date: 20100525
  Serious: Yes (Death)
  Sender: FDA-Public Use
  Company Number: CO-GENENTECH-291816

PATIENT
  Age: 72 Year
  Sex: Female

DRUGS (1)
  1. ACTIVASE [Suspect]
     Indication: PULMONARY EMBOLISM
     Dosage: 10 MG, UNK
     Route: 042
     Dates: start: 20090926, end: 20090926

REACTIONS (1)
  - PULMONARY EMBOLISM [None]
